FAERS Safety Report 12201670 (Version 1)
Quarter: 2016Q1

REPORT INFORMATION
  Report Type: Spontaneous
  Country: US (occurrence: US)
  Receive Date: 20160322
  Receipt Date: 20160322
  Transmission Date: 20160526
  Serious: No
  Sender: FDA-Public Use
  Company Number: US-SA-2015SA190255

PATIENT
  Sex: Female

DRUGS (2)
  1. NASACORT ALLERGY 24HR [Suspect]
     Active Substance: TRIAMCINOLONE ACETONIDE
     Indication: POSTOPERATIVE CARE
     Dosage: 2 SPRAYS IN EACH NOSTRIL ONCE DAILY?FOR ABOUT 3 WEEKS TO A MONTH
     Route: 045
  2. NASACORT ALLERGY 24HR [Suspect]
     Active Substance: TRIAMCINOLONE ACETONIDE
     Indication: POSTOPERATIVE CARE
     Dosage: 2 SPRAYS IN EACH NOSTRIL TWICE DAILY?FOR ABOUT 3 WEEKS TO A MONTH
     Route: 045

REACTIONS (4)
  - Extra dose administered [Unknown]
  - Nasal disorder [Not Recovered/Not Resolved]
  - Erythema [Not Recovered/Not Resolved]
  - Nasal discomfort [Not Recovered/Not Resolved]
